FAERS Safety Report 8357626-2 (Version None)
Quarter: 2012Q2

REPORT INFORMATION
  Report Type: 
  Country: None (occurrence: None)
  Receive Date: 20120514
  Receipt Date: 20120509
  Transmission Date: 20120825
  Serious: No
  Sender: FDA-Public Use
  Company Number: US-PFIZER INC-2012113669

PATIENT
  Sex: Female

DRUGS (4)
  1. HEPARIN [Concomitant]
     Indication: HYPERTRIGLYCERIDAEMIA
     Dosage: UNK
  2. TYGACIL [Suspect]
     Indication: LYME DISEASE
     Dosage: 50 MG, DAILY
     Dates: start: 20120101
  3. TYGACIL [Suspect]
     Indication: STAPHYLOCOCCAL INFECTION
  4. TYGACIL [Suspect]
     Indication: OSTEOMYELITIS

REACTIONS (6)
  - PLATELET DISORDER [None]
  - NAUSEA [None]
  - INCREASED UPPER AIRWAY SECRETION [None]
  - VOMITING [None]
  - MENORRHAGIA [None]
  - ANAEMIA [None]
